FAERS Safety Report 24883238 (Version 1)
Quarter: 2025Q1

REPORT INFORMATION
  Report Type: Spontaneous
  Country: DE (occurrence: DE)
  Receive Date: 20250124
  Receipt Date: 20250124
  Transmission Date: 20250409
  Serious: Yes (Congenital Anomaly)
  Sender: INSUD PHARMA
  Company Number: DE-EMB-M202308437-1

PATIENT
  Sex: Male
  Weight: 4.13 kg

DRUGS (3)
  1. PROGESTERONE [Suspect]
     Active Substance: PROGESTERONE
     Indication: Prophylaxis of abortion
     Route: 064
     Dates: start: 202308, end: 202311
  2. BOOSTRIX [Concomitant]
     Active Substance: TETANUS TOXOID, REDUCED DIPHTHERIA TOXOID AND ACELLULAR PERTUSSIS VACCINE, ADSORBED ANTIGENS
     Indication: Immunisation
     Route: 064
     Dates: start: 202403, end: 202403
  3. ASPIRIN [Concomitant]
     Active Substance: ASPIRIN
     Indication: Prophylaxis of abortion
     Route: 064
     Dates: start: 202309, end: 202309

REACTIONS (4)
  - Atrial septal defect [Unknown]
  - Ventricular septal defect [Not Recovered/Not Resolved]
  - Atrial septal defect [Unknown]
  - Exposure during pregnancy [Unknown]
